FAERS Safety Report 6376363-7 (Version None)
Quarter: 2009Q3

REPORT INFORMATION
  Report Type: 
  Country: None (occurrence: None)
  Receive Date: 20090925
  Receipt Date: 20090918
  Transmission Date: 20100115
  Serious: Yes (Other)
  Sender: FDA-Public Use
  Company Number: IN-ALLERGAN-0810997US

PATIENT
  Age: 8 Year
  Sex: Female

DRUGS (1)
  1. CYCLOPENTOLATE HCL 1.0% SOL [Suspect]
     Indication: OPHTHALMOLOGICAL EXAMINATION
     Dosage: 2 GTT, SINGLE
     Route: 047

REACTIONS (9)
  - DELUSION [None]
  - DRY SKIN [None]
  - FLUSHING [None]
  - HALLUCINATION [None]
  - HEART RATE INCREASED [None]
  - PUPILLARY REFLEX IMPAIRED [None]
  - SKIN WARM [None]
  - SPEECH DISORDER [None]
  - URINARY RETENTION [None]
